FAERS Safety Report 5186299-5 (Version None)
Quarter: 2006Q4

REPORT INFORMATION
  Report Type: 
  Country: None (occurrence: None)
  Receive Date: 20061213
  Receipt Date: 20061201
  Transmission Date: 20070319
  Serious: Yes (Hospitalization, Other)
  Sender: FDA-Public Use
  Company Number: HQWYE128104DEC06

PATIENT
  Age: 85 Year
  Sex: Female

DRUGS (9)
  1. CORDARONE [Suspect]
     Indication: CARDIAC DISORDER
     Dosage: 200 MG 1X PER 1 DAY, ORAL/A FEW YEARS
     Route: 048
  2. PREDNISONE [Suspect]
     Indication: POLYARTHRITIS
     Dosage: 10 MG 1X PER 1 DAY, ORAL
     Route: 048
     Dates: start: 20060215, end: 20060515
  3. PREVISCAN (FLUINDIONE, ) [Suspect]
     Indication: ATRIAL FIBRILLATION
     Dosage: 10 MG 1X PER 1 DAY, ORAL
     Route: 048
     Dates: end: 20060420
  4. PREVISCAN (FLUINDIONE, ) [Suspect]
     Indication: ATRIAL FLUTTER
     Dosage: 10 MG 1X PER 1 DAY, ORAL
     Route: 048
     Dates: end: 20060420
  5. PRETERAX (INDAPAMIDE/PERINDOPRIL/ERBUMINE) [Concomitant]
  6. BISOPROLOL FUMARATE [Concomitant]
  7. PRAVASTATIN [Concomitant]
  8. ANAFRANIL [Concomitant]
  9. ATHYMIL (MIANSERIN HYDROCHLORIDE) [Concomitant]

REACTIONS (8)
  - ABNORMAL BEHAVIOUR [None]
  - AGITATION [None]
  - CONFUSIONAL STATE [None]
  - DRUG INTERACTION [None]
  - FALL [None]
  - HAEMATOMA [None]
  - HYPOTENSION [None]
  - IRON DEFICIENCY ANAEMIA [None]
